FAERS Safety Report 20137336 (Version 2)
Quarter: 2022Q1

REPORT INFORMATION
  Report Type: Spontaneous
  Country: ES (occurrence: ES)
  Receive Date: 20211201
  Receipt Date: 20220126
  Transmission Date: 20220423
  Serious: Yes (Other)
  Sender: FDA-Public Use
  Company Number: ES-GILEAD-2021-0558776

PATIENT
  Age: 32 Year
  Sex: Male

DRUGS (1)
  1. BIKTARVY [Suspect]
     Active Substance: BICTEGRAVIR SODIUM\EMTRICITABINE\TENOFOVIR ALAFENAMIDE FUMARATE
     Indication: HIV infection
     Dosage: UNK
     Route: 065
     Dates: start: 202010

REACTIONS (3)
  - Systemic lupus erythematosus [Not Recovered/Not Resolved]
  - Skin lesion [Not Recovered/Not Resolved]
  - Lymphadenopathy [Not Recovered/Not Resolved]
